FAERS Safety Report 6545079-6 (Version None)
Quarter: 2010Q1

REPORT INFORMATION
  Report Type: 
  Country: None (occurrence: None)
  Receive Date: 20100121
  Receipt Date: 20100111
  Transmission Date: 20100710
  Serious: Yes (Other)
  Sender: FDA-Public Use
  Company Number: BR-ABBOTT-09P-020-0605015-00

PATIENT
  Sex: Female

DRUGS (3)
  1. HUMIRA [Suspect]
     Indication: RHEUMATOID ARTHRITIS
     Route: 058
     Dates: start: 20090101
  2. HUMIRA [Suspect]
     Route: 058
  3. UNKNOWN ANTI-INFLAMMATORY [Concomitant]
     Indication: RHEUMATOID ARTHRITIS

REACTIONS (3)
  - ANAEMIA [None]
  - HAEMORRHAGE [None]
  - MENSTRUATION IRREGULAR [None]
